FAERS Safety Report 8034397-0 (Version None)
Quarter: 2011Q4

REPORT INFORMATION
  Report Type: 
  Country: None (occurrence: None)
  Receive Date: 20111202
  Receipt Date: 20110616
  Transmission Date: 20120403
  Serious: Yes (Other)
  Sender: FDA-Public Use
  Company Number: WAES 1106USA02271

PATIENT
  Age: 76 Year
  Sex: Female
  Weight: 86.637 kg

DRUGS (6)
  1. CIPROFLOXACIN [Concomitant]
  2. LIPITOR [Concomitant]
  3. ASPIRIN [Concomitant]
  4. AVELOX [Concomitant]
  5. FOSAMAX [Suspect]
     Indication: OSTEOPENIA
     Dosage: 70 MG/WKY/PO
     Route: 048
     Dates: start: 20030101, end: 20110601
  6. AMLODIPINE [Concomitant]

REACTIONS (2)
  - OSTEONECROSIS OF JAW [None]
  - MOUTH ULCERATION [None]
